FAERS Safety Report 7500720-6 (Version None)
Quarter: 2011Q2

REPORT INFORMATION
  Report Type: 
  Country: None (occurrence: None)
  Receive Date: 20110524
  Receipt Date: 20110517
  Transmission Date: 20111010
  Serious: Yes (Hospitalization, Other)
  Sender: FDA-Public Use
  Company Number: BR-MEDIMMUNE-MEDI-0012390

PATIENT
  Sex: Male
  Weight: 8.75 kg

DRUGS (3)
  1. SYNAGIS [Suspect]
     Route: 030
     Dates: start: 20100707, end: 20101009
  2. BECLOMETASONE DIPROPIONATE [Concomitant]
     Indication: WHEEZING
  3. BECLOMETASONE DIPROPIONATE [Concomitant]
     Indication: BRONCHOSPASM
     Route: 055

REACTIONS (2)
  - BRONCHIOLITIS [None]
  - BRONCHOSPASM [None]
